FAERS Safety Report 13121258 (Version 2)
Quarter: 2017Q1

REPORT INFORMATION
  Report Type: Spontaneous
  Country: US (occurrence: US)
  Receive Date: 20170117
  Receipt Date: 20170117
  Transmission Date: 20170428
  Serious: Yes (Other)
  Sender: FDA-Public Use
  Company Number: US-BAYER-2017-006310

PATIENT
  Age: 58 Year
  Sex: Female

DRUGS (1)
  1. NEXAVAR [Suspect]
     Active Substance: SORAFENIB
     Dosage: UNK

REACTIONS (6)
  - Hyperkeratosis [None]
  - Skin haemorrhage [None]
  - Pain in extremity [None]
  - Dry skin [None]
  - Skin fissures [None]
  - Pruritus [None]

NARRATIVE: CASE EVENT DATE: 201612
